FAERS Safety Report 5490739-1 (Version None)
Quarter: 2007Q4

REPORT INFORMATION
  Report Type: 
  Country: None (occurrence: None)
  Receive Date: 20071019
  Receipt Date: 20071009
  Transmission Date: 20080405
  Serious: Yes (Hospitalization)
  Sender: FDA-Public Use
  Company Number: B0491379A

PATIENT
  Age: 41 Year
  Sex: Male

DRUGS (5)
  1. BUPROPION HCL [Suspect]
     Indication: MAJOR DEPRESSION
     Dosage: 150MG PER DAY
     Route: 048
  2. METHADONE HCL [Concomitant]
     Route: 065
  3. COCAINE [Concomitant]
  4. ALCOHOL [Concomitant]
  5. CLONAZEPAM [Concomitant]
     Indication: ANXIETY
     Dosage: 1MG PER DAY

REACTIONS (8)
  - ABNORMAL BEHAVIOUR [None]
  - DELUSION [None]
  - FEAR [None]
  - HEPATIC ENZYME INCREASED [None]
  - HYPERHIDROSIS [None]
  - PALPITATIONS [None]
  - PSYCHOMOTOR HYPERACTIVITY [None]
  - PSYCHOTIC DISORDER [None]
